FAERS Safety Report 13151554 (Version 3)
Quarter: 2021Q2

REPORT INFORMATION
  Report Type: Spontaneous
  Country: IT (occurrence: IT)
  Receive Date: 20170125
  Receipt Date: 20210603
  Transmission Date: 20210716
  Serious: Yes (Death, Hospitalization, Other)
  Sender: FDA-Public Use
  Company Number: IT-SA-2017SA011827

PATIENT
  Age: 20 Month
  Sex: Female

DRUGS (6)
  1. MORPHINE [Concomitant]
     Active Substance: MORPHINE
     Dosage: UNK
  2. MYOZYME [Suspect]
     Active Substance: ALGLUCOSIDASE ALFA
     Indication: GLYCOGEN STORAGE DISEASE TYPE II
     Dosage: 20 MG/KG,QOW
     Route: 041
     Dates: start: 20151101
  3. MYOZYME [Suspect]
     Active Substance: ALGLUCOSIDASE ALFA
     Dosage: 20 MG/KG,QW
     Route: 041
  4. MYOZYME [Suspect]
     Active Substance: ALGLUCOSIDASE ALFA
     Dosage: 40 MG/KG,QW
     Route: 041
     Dates: end: 20161223
  5. METHOTREXATE. [Concomitant]
     Active Substance: METHOTREXATE
     Indication: IMMUNE TOLERANCE INDUCTION
     Dosage: UNK
  6. RITUXIMAB. [Concomitant]
     Active Substance: RITUXIMAB
     Indication: IMMUNE TOLERANCE INDUCTION
     Dosage: UNK

REACTIONS (12)
  - Dyspnoea [Fatal]
  - Respiratory syncytial virus bronchiolitis [Unknown]
  - Pneumonia [Fatal]
  - Acute respiratory failure [Fatal]
  - Respiratory tract infection [Fatal]
  - Dysphagia [Unknown]
  - Atelectasis [Fatal]
  - Pyrexia [Fatal]
  - Increased bronchial secretion [Unknown]
  - Productive cough [Fatal]
  - Oxygen saturation decreased [Unknown]
  - Hypotonia [Unknown]

NARRATIVE: CASE EVENT DATE: 20161208
